FAERS Safety Report 19266634 (Version 1)
Quarter: 2021Q2

REPORT INFORMATION
  Report Type: Spontaneous
  Country: US (occurrence: US)
  Receive Date: 20210518
  Receipt Date: 20210518
  Transmission Date: 20210717
  Serious: No
  Sender: FDA-Public Use
  Company Number: US-CELLTRION INC.-2021US004595

PATIENT

DRUGS (3)
  1. TRUXIMA [Suspect]
     Active Substance: RITUXIMAB-ABBS
     Dosage: STARTING FROM 50 ML/HR TO 100 ML/HR, THEN 200 ML/HR AND THEN 300 ML/HR
     Dates: start: 20210405, end: 20210405
  2. CHOP [Suspect]
     Active Substance: CYCLOPHOSPHAMIDE\DOXORUBICIN\PREDNISONE\VINCRISTINE
     Indication: FOLLICULAR LYMPHOMA
     Dosage: UNK
     Dates: start: 20210315
  3. TRUXIMA [Suspect]
     Active Substance: RITUXIMAB-ABBS
     Indication: FOLLICULAR LYMPHOMA
     Dosage: 375 MG/M2, EVERY 21 DAYS
     Dates: start: 20210315, end: 20210315

REACTIONS (6)
  - Pharyngeal paraesthesia [Unknown]
  - Chest discomfort [Unknown]
  - Throat irritation [Unknown]
  - Headache [Unknown]
  - Throat tightness [Unknown]
  - Oropharyngeal discomfort [Unknown]

NARRATIVE: CASE EVENT DATE: 20210315
